FAERS Safety Report 5124922-1 (Version None)
Quarter: 2006Q4

REPORT INFORMATION
  Report Type: 
  Country: None (occurrence: None)
  Receive Date: 20061011
  Receipt Date: 20060316
  Transmission Date: 20070319
  Serious: Yes (Hospitalization)
  Sender: FDA-Public Use
  Company Number: US-BRISTOL-MYERS SQUIBB COMPANY-13316674

PATIENT
  Age: 68 Year
  Sex: Male

DRUGS (6)
  1. CISPLATIN [Suspect]
     Indication: NON-SMALL CELL LUNG CANCER
     Route: 042
     Dates: start: 20060221, end: 20060221
  2. TS-1 [Suspect]
     Indication: NON-SMALL CELL LUNG CANCER
     Route: 048
     Dates: start: 20060305, end: 20060305
  3. LIPITOR [Concomitant]
     Indication: HYPERCHOLESTEROLAEMIA
     Route: 048
     Dates: start: 20020101
  4. FIBERCON [Concomitant]
     Indication: PROPHYLAXIS
     Route: 048
     Dates: start: 20020101
  5. XANAX [Concomitant]
     Indication: ANXIETY
     Route: 048
     Dates: start: 20051201
  6. IMODIUM [Concomitant]
     Indication: DIARRHOEA
     Route: 048
     Dates: start: 20060102

REACTIONS (1)
  - SMALL INTESTINAL ULCER HAEMORRHAGE [None]
